FAERS Safety Report 8320502-5 (Version None)
Quarter: 2012Q2

REPORT INFORMATION
  Report Type: 
  Country: None (occurrence: None)
  Receive Date: 20120427
  Receipt Date: 20120427
  Transmission Date: 20120825
  Serious: Yes (Other)
  Sender: FDA-Public Use
  Company Number: None

PATIENT
  Age: 33 Year
  Sex: Female
  Weight: 60 kg

DRUGS (3)
  1. PROMETHAZINE [Suspect]
     Indication: VOMITING IN PREGNANCY
     Dosage: 25 MG
     Route: 048
     Dates: start: 20120425, end: 20120426
  2. PROMETHAZINE [Concomitant]
  3. FOLIC ACID [Concomitant]

REACTIONS (4)
  - MATERNAL EXPOSURE DURING PREGNANCY [None]
  - VOMITING [None]
  - DYSKINESIA [None]
  - SOMNOLENCE [None]
